FAERS Safety Report 10390136 (Version 1)
Quarter: 2014Q3

REPORT INFORMATION
  Report Type: Spontaneous
  Country: JP (occurrence: None)
  Receive Date: 20140814
  Receipt Date: 20140814
  Transmission Date: 20150326
  Serious: Yes (Other)
  Sender: FDA-Public Use
  Company Number: COR_00051_2014

PATIENT
  Age: 67 Year
  Sex: Female

DRUGS (4)
  1. CARBOPLATIN (CARBOPLATIN) [Suspect]
     Active Substance: CARBOPLATIN
     Indication: OVARIAN CANCER
  2. PACLITAXEL. [Concomitant]
     Active Substance: PACLITAXEL
  3. DEXAMETHASONE. [Concomitant]
     Active Substance: DEXAMETHASONE
  4. NEDAPLATIN (NEDAPLATIN) [Suspect]
     Active Substance: NEDAPLATIN
     Indication: OVARIAN CANCER

REACTIONS (2)
  - Hypotension [None]
  - Drug hypersensitivity [None]
